FAERS Safety Report 7216447-4 (Version None)
Quarter: 2011Q1

REPORT INFORMATION
  Report Type: 
  Country: None (occurrence: None)
  Receive Date: 20110107
  Receipt Date: 20101229
  Transmission Date: 20110831
  Serious: Yes (Death, Other)
  Sender: FDA-Public Use
  Company Number: GXBR2010US02153

PATIENT
  Sex: Female
  Weight: 72.562 kg

DRUGS (8)
  1. ALBUTEROL SULFATE [Concomitant]
     Dosage: UNK
     Dates: start: 20091004
  2. NORVASC [Concomitant]
  3. MIDAZOLAM HCL [Suspect]
     Dosage: UNK
     Dates: start: 20091004
  4. ANECTINE [Suspect]
     Indication: ENDOTRACHEAL INTUBATION
     Dosage: 120 MG, UNK
     Route: 042
     Dates: start: 20091004, end: 20091004
  5. ASPIRIN [Concomitant]
  6. CARVEDILOL [Concomitant]
  7. LISINOPRIL [Concomitant]
  8. NITROGLYCERIN ^A.L.^ [Concomitant]
     Dosage: UNK
     Dates: start: 20091004

REACTIONS (4)
  - CARDIAC ARREST [None]
  - HYPOXIC-ISCHAEMIC ENCEPHALOPATHY [None]
  - COMA [None]
  - RESUSCITATION [None]
